FAERS Safety Report 12615495 (Version 4)
Quarter: 2016Q3

REPORT INFORMATION
  Report Type: Spontaneous
  Country: FR (occurrence: FR)
  Receive Date: 20160802
  Receipt Date: 20160809
  Transmission Date: 20161109
  Serious: Yes (Death, Hospitalization)
  Sender: FDA-Public Use
  Company Number: PHHY2016FR103316

PATIENT
  Age: 50 Year
  Sex: Male

DRUGS (4)
  1. GLIVEC [Suspect]
     Active Substance: IMATINIB MESYLATE
     Dosage: 300 MG, BID
     Route: 048
     Dates: start: 20160603, end: 20160617
  2. GLIVEC [Suspect]
     Active Substance: IMATINIB MESYLATE
     Indication: CHRONIC MYELOID LEUKAEMIA
     Dosage: 300 MG, BID
     Route: 065
     Dates: start: 201512
  3. LAROXYL [Suspect]
     Active Substance: AMITRIPTYLINE
     Indication: HEADACHE
     Dosage: UNK
     Route: 048
     Dates: start: 20160610, end: 20160622
  4. DOXYCYCLINE. [Suspect]
     Active Substance: DOXYCYCLINE
     Indication: SKIN ULCER
     Dosage: 100 MG, BID
     Route: 048
     Dates: start: 20160605, end: 20160622

REACTIONS (3)
  - Peritonitis [Recovered/Resolved]
  - Intestinal perforation [Fatal]
  - Peritonitis [Fatal]

NARRATIVE: CASE EVENT DATE: 20160622
